FAERS Safety Report 11360271 (Version 1)
Quarter: 2015Q3

REPORT INFORMATION
  Report Type: Report from Study
  Country: US (occurrence: US)
  Receive Date: 20150810
  Receipt Date: 20150810
  Transmission Date: 20151125
  Serious: Yes (Other)
  Sender: FDA-Public Use
  Company Number: PHEH2014US004932

PATIENT
  Age: 69 Year
  Sex: Female

DRUGS (4)
  1. BETASERON//INTERFERON BETA-1B [Concomitant]
     Dosage: UNK UKN, UNK
     Route: 065
     Dates: end: 2014
  2. AMPYRA [Suspect]
     Active Substance: DALFAMPRIDINE
     Indication: PRODUCT USED FOR UNKNOWN INDICATION
     Dosage: 10 MG, BID
     Route: 065
  3. EXTAVIA [Suspect]
     Active Substance: INTERFERON BETA-1B
     Indication: MULTIPLE SCLEROSIS
     Dosage: 0.25 MG, QOD
     Route: 058
     Dates: start: 20140301, end: 20140306
  4. BETASERON//INTERFERON BETA-1B [Concomitant]
     Dosage: UNK UKN, UNK
     Route: 065
     Dates: start: 20140306

REACTIONS (2)
  - Rash [Unknown]
  - Pruritus generalised [Unknown]

NARRATIVE: CASE EVENT DATE: 20140301
